FAERS Safety Report 24313902 (Version 1)
Quarter: 2024Q3

REPORT INFORMATION
  Report Type: Spontaneous
  Country: RU (occurrence: RU)
  Receive Date: 20240912
  Receipt Date: 20240912
  Transmission Date: 20241017
  Serious: Yes (Other)
  Sender: VERTEX
  Company Number: RU-VERTEX PHARMACEUTICALS-2024-014188

PATIENT
  Age: 9 Year
  Sex: Male
  Weight: 24 kg

DRUGS (7)
  1. TRIKAFTA [Suspect]
     Active Substance: ELEXACAFTOR\IVACAFTOR\TEZACAFTOR
     Indication: Cystic fibrosis
     Dosage: ONE TABLET THREE TIMES A DAY
     Route: 048
     Dates: start: 20240412, end: 20240830
  2. TIGERASE [Concomitant]
  3. AZITHROMYCIN [Concomitant]
     Active Substance: AZITHROMYCIN
  4. FLUCONAZOLE [Concomitant]
     Active Substance: FLUCONAZOLE
  5. BIFRADUAL [Concomitant]
  6. EXCHOL [Concomitant]
  7. CREON [Concomitant]
     Active Substance: PANCRELIPASE AMYLASE\PANCRELIPASE LIPASE\PANCRELIPASE PROTEASE

REACTIONS (4)
  - Blood pressure decreased [Recovered/Resolved]
  - Asthenia [Recovered/Resolved]
  - Dizziness [Recovered/Resolved]
  - Headache [Recovered/Resolved]

NARRATIVE: CASE EVENT DATE: 20240413
